FAERS Safety Report 22218085 (Version 2)
Quarter: 2023Q2

REPORT INFORMATION
  Report Type: Report from Study
  Country: BR (occurrence: BR)
  Receive Date: 20230417
  Receipt Date: 20230419
  Transmission Date: 20230722
  Serious: Yes (Hospitalization)
  Sender: FDA-Public Use
  Company Number: BR-009507513-2204BRA009606

PATIENT
  Age: 46 Year
  Sex: Female
  Weight: 58 kg

DRUGS (16)
  1. PEMBROLIZUMAB [Suspect]
     Active Substance: PEMBROLIZUMAB
     Indication: Cervix carcinoma
     Dosage: 200 MILLIGRAM, EVERY 21 DAYS (Q3W) FOR 35 CYCLES
     Dates: start: 20220407, end: 20220811
  2. PEMBROLIZUMAB [Suspect]
     Active Substance: PEMBROLIZUMAB
     Dosage: 200 MILLIGRAM, EVERY 21 DAYS (Q3W) FOR 35 CYCLES
     Dates: start: 20220922
  3. PACLITAXEL [Suspect]
     Active Substance: PACLITAXEL
     Indication: Cervix carcinoma
     Dosage: 175 MG, 6 CYCLES, EVERY 21 DAYS
     Dates: start: 20220317, end: 20220714
  4. CARBOPLATIN [Suspect]
     Active Substance: CARBOPLATIN
     Indication: Cervix carcinoma
     Dosage: AREA UNDER THE CURVE (AUC) 5, 6 CYCLES, EVERY 21 DAYS
     Dates: start: 20220317, end: 20220714
  5. BISACODYL [Concomitant]
     Active Substance: BISACODYL
     Indication: Constipation
     Dosage: 5 MG, 2 TABLETS, PRN
     Route: 048
     Dates: start: 20210316
  6. LACTULOSE [Concomitant]
     Active Substance: LACTULOSE
     Indication: Constipation
     Dosage: 667 MG/ML, 10 ML, PRN
     Route: 048
     Dates: start: 20210316
  7. METHADONE [Concomitant]
     Active Substance: METHADONE HYDROCHLORIDE
     Indication: Pelvic pain
     Dosage: 10 MG, 0.5 TABLET, TID
     Route: 048
     Dates: start: 20220224
  8. METHADONE [Concomitant]
     Active Substance: METHADONE HYDROCHLORIDE
     Dosage: 10 MG, 0.5 TABLET, TID
     Route: 048
     Dates: start: 20220224
  9. MORPHINE [Concomitant]
     Active Substance: MORPHINE
     Indication: Pelvic pain
     Dosage: 10 MG, 1 TABLET, QYD, PRN
     Route: 048
     Dates: start: 20220224, end: 20220829
  10. OMEPRAZOLE [Concomitant]
     Active Substance: OMEPRAZOLE
     Indication: Gastritis prophylaxis
     Dosage: 20 MG, 1 TABLET, QD
     Route: 048
     Dates: start: 20210316
  11. METOCLOPRAMIDE [Concomitant]
     Active Substance: METOCLOPRAMIDE
     Indication: Nausea
     Dosage: 10 MG, 1 TABLET, TID, PRN
     Route: 048
     Dates: start: 202201, end: 20220815
  12. DIMENHYDRINATE\PYRIDOXINE HYDROCHLORIDE [Concomitant]
     Active Substance: DIMENHYDRINATE\PYRIDOXINE HYDROCHLORIDE
     Indication: Nausea
     Dosage: (DIMENHYDRATE 50 MG + PYRIDOXINE 10 MG) 1 TABLET, TID
     Route: 048
     Dates: start: 202201, end: 20220815
  13. VENLAFAXINE [Concomitant]
     Active Substance: VENLAFAXINE HYDROCHLORIDE
     Indication: Anxiety
     Dosage: 1 TABLET 75 MILLIGRAM, QD
     Route: 048
     Dates: start: 202201
  14. VENLAFAXINE [Concomitant]
     Active Substance: VENLAFAXINE HYDROCHLORIDE
     Dosage: 4 TABLET, QD
     Dates: start: 20220829
  15. CLONAZEPAM [Concomitant]
     Active Substance: CLONAZEPAM
     Indication: Anxiety
     Dosage: 1 TABLET 2 MILLIGRAM, QD
     Route: 048
     Dates: start: 202201
  16. DIPYRONE [Concomitant]
     Active Substance: DIPYRONE
     Indication: Pelvic pain
     Dosage: TOTAL DAILY DOSE: 1 TABLET 500 MILLIGRAM, PRN
     Route: 048
     Dates: start: 202201

REACTIONS (34)
  - Asthma [Recovered/Resolved]
  - Dyspnoea [Recovered/Resolved]
  - Eye irritation [Recovered/Resolved]
  - Eye irritation [Recovering/Resolving]
  - Chest pain [Recovered/Resolved]
  - Chest pain [Recovered/Resolved]
  - Chest pain [Recovered/Resolved]
  - Anal haemorrhage [Recovered/Resolved]
  - Asthmatic crisis [Recovered/Resolved]
  - Asthmatic crisis [Recovering/Resolving]
  - Abscess [Recovered/Resolved]
  - Hypercholesterolaemia [Recovering/Resolving]
  - Hypomagnesaemia [Recovered/Resolved]
  - Hypomagnesaemia [Recovered/Resolved]
  - Lymphocyte count decreased [Recovered/Resolved]
  - Lymphocyte count decreased [Recovered/Resolved]
  - Lymphocyte count decreased [Recovered/Resolved]
  - White blood cell count decreased [Recovered/Resolved]
  - Mucosal inflammation [Recovered/Resolved]
  - Platelet count decreased [Recovered/Resolved]
  - Platelet count decreased [Recovered/Resolved]
  - Platelet count decreased [Recovered/Resolved]
  - Neutrophil count decreased [Recovered/Resolved]
  - Alopecia [Recovered/Resolved]
  - Gastritis [Recovering/Resolving]
  - Hypokalaemia [Recovered/Resolved]
  - Hypokalaemia [Recovered/Resolved]
  - Dermatitis [Recovering/Resolving]
  - Anaemia [Recovered/Resolved]
  - Vomiting [Recovered/Resolved]
  - Vomiting [Recovered/Resolved]
  - Hypothyroidism [Recovered/Resolved]
  - Abdominal pain [Recovered/Resolved]
  - Colitis [Recovering/Resolving]

NARRATIVE: CASE EVENT DATE: 20220331
